FAERS Safety Report 7969543-8 (Version None)
Quarter: 2011Q4

REPORT INFORMATION
  Report Type: 
  Country: None (occurrence: None)
  Receive Date: 20111212
  Receipt Date: 20111207
  Transmission Date: 20120403
  Serious: No
  Sender: FDA-Public Use
  Company Number: US-PFIZER INC-2011299671

PATIENT
  Sex: Male
  Weight: 90.703 kg

DRUGS (5)
  1. TRIAMTERENE [Concomitant]
     Dosage: UNK
  2. VYTORIN [Concomitant]
     Indication: BLOOD CHOLESTEROL ABNORMAL
     Dosage: UNK
  3. LISINOPRIL [Concomitant]
     Dosage: UNK
  4. METFORMIN [Concomitant]
     Indication: DIABETES MELLITUS
     Dosage: UNK
  5. PROCARDIA [Suspect]
     Indication: HYPERTENSION
     Dosage: UNK
     Dates: end: 20110101

REACTIONS (1)
  - DEPENDENCE [None]
